FAERS Safety Report 9581248 (Version 2)
Quarter: 2013Q4

REPORT INFORMATION
  Report Type: Spontaneous
  Country: US (occurrence: US)
  Receive Date: 20131002
  Receipt Date: 20131122
  Transmission Date: 20140711
  Serious: No
  Sender: FDA-Public Use
  Company Number: US-PFIZER INC-2013279812

PATIENT
  Age: 79 Year
  Sex: Male

DRUGS (3)
  1. NEURONTIN [Suspect]
     Indication: NEUROPATHY PERIPHERAL
     Dosage: 600 MG, 3X/DAY
  2. NEURONTIN [Suspect]
     Dosage: 600 MG, ONE OR TWO TIMES A DAY
     Dates: end: 201309
  3. XANAX [Suspect]
     Dosage: 1 MG, DAILY
     Dates: start: 1993

REACTIONS (4)
  - Intentional drug misuse [Unknown]
  - Burning sensation [Unknown]
  - Dysphagia [Unknown]
  - Product size issue [Unknown]
